FAERS Safety Report 4911109-8 (Version None)
Quarter: 2006Q1

REPORT INFORMATION
  Report Type: 
  Country: None (occurrence: None)
  Receive Date: 20060209
  Receipt Date: 20060127
  Transmission Date: 20060701
  Serious: Yes (Hospitalization, Other)
  Sender: FDA-Public Use
  Company Number: 2006015244

PATIENT
  Age: 44 Year
  Sex: Female

DRUGS (3)
  1. ZITHROMAX [Suspect]
     Indication: PHARYNGITIS
     Dosage: 250 MG (250 MG, DAILY), ORAL
     Route: 048
     Dates: start: 20060110, end: 20060113
  2. ADVIL [Concomitant]
  3. FIORINAL [Concomitant]

REACTIONS (11)
  - ABDOMINAL PAIN [None]
  - ANAPHYLACTIC REACTION [None]
  - ARTHRALGIA [None]
  - HYPERSENSITIVITY [None]
  - OEDEMA PERIPHERAL [None]
  - PRURITUS [None]
  - RAYNAUD'S PHENOMENON [None]
  - SWELLING [None]
  - SWELLING FACE [None]
  - SWOLLEN TONGUE [None]
  - URTICARIA [None]
